FAERS Safety Report 11929814 (Version 1)
Quarter: 2016Q1

REPORT INFORMATION
  Report Type: Spontaneous
  Country: US (occurrence: None)
  Receive Date: 20160119
  Receipt Date: 20160119
  Transmission Date: 20160526
  Serious: Yes (Other)
  Sender: FDA-Public Use
  Company Number: None

PATIENT
  Age: 31 Year
  Sex: Male

DRUGS (12)
  1. ASPIRIN-LOW [Concomitant]
  2. VITAMIN D [Concomitant]
     Active Substance: CHOLECALCIFEROL
  3. LORATADINE. [Concomitant]
     Active Substance: LORATADINE
  4. RISPERIDONE. [Concomitant]
     Active Substance: RISPERIDONE
  5. METHYLPREDNISOLONE. [Concomitant]
     Active Substance: METHYLPREDNISOLONE
  6. SIMVASTATIN. [Suspect]
     Active Substance: SIMVASTATIN
     Indication: BLOOD CHOLESTEROL
     Route: 048
     Dates: start: 20151201, end: 20160101
  7. MESYLATE [Concomitant]
  8. TRAZODONE HYDROCHLORIDE. [Concomitant]
     Active Substance: TRAZODONE HYDROCHLORIDE
  9. BENZTROPINE [Concomitant]
     Active Substance: BENZTROPINE
  10. MONETASONE FUROATE [Concomitant]
  11. FAMOTIDINE. [Concomitant]
     Active Substance: FAMOTIDINE
  12. ALLOPURINOL. [Concomitant]
     Active Substance: ALLOPURINOL

REACTIONS (5)
  - Rash [None]
  - Arthralgia [None]
  - Muscular weakness [None]
  - Headache [None]
  - Hypersensitivity [None]

NARRATIVE: CASE EVENT DATE: 20160104
